FAERS Safety Report 23055086 (Version 1)
Quarter: 2023Q4

REPORT INFORMATION
  Report Type: Spontaneous
  Country: US (occurrence: None)
  Receive Date: 20231010
  Receipt Date: 20231010
  Transmission Date: 20240110
  Serious: Yes (Hospitalization)
  Sender: FDA-Public Use
  Company Number: None

PATIENT
  Age: 84 Year
  Sex: Male

DRUGS (1)
  1. LENALIDOMIDE [Suspect]
     Active Substance: LENALIDOMIDE
     Indication: Monoclonal gammopathy
     Dosage: FREQUENCY : DAILY;?
     Route: 048
     Dates: start: 20230317

REACTIONS (3)
  - Pancytopenia [None]
  - Parainfluenzae virus infection [None]
  - Pneumonia [None]

NARRATIVE: CASE EVENT DATE: 20231010
